FAERS Safety Report 10960587 (Version 2)
Quarter: 2015Q2

REPORT INFORMATION
  Report Type: Spontaneous
  Country: US (occurrence: US)
  Receive Date: 20150327
  Receipt Date: 20150623
  Transmission Date: 20150821
  Serious: Yes (Other)
  Sender: FDA-Public Use
  Company Number: US-BEH-2015049828

PATIENT
  Age: 36 Year
  Sex: Male
  Weight: 90.7 kg

DRUGS (2)
  1. BERINERT [Suspect]
     Active Substance: HUMAN C1-ESTERASE INHIBITOR
     Indication: HEREDITARY ANGIOEDEMA
     Dosage: 500 UNIT VIAL
     Route: 042
  2. DANAZOL. [Concomitant]
     Active Substance: DANAZOL

REACTIONS (3)
  - Hereditary angioedema [Recovered/Resolved]
  - Abdominal distension [Recovered/Resolved]
  - Oedema peripheral [Recovered/Resolved]

NARRATIVE: CASE EVENT DATE: 20150313
